FAERS Safety Report 9098594 (Version 1)
Quarter: 2013Q1

REPORT INFORMATION
  Report Type: Spontaneous
  Country: SE (occurrence: SE)
  Receive Date: 20130214
  Receipt Date: 20130214
  Transmission Date: 20140127
  Serious: Yes (Other)
  Sender: FDA-Public Use
  Company Number: SE-PFIZER INC-2013057134

PATIENT
  Age: 66 Year
  Sex: Female

DRUGS (15)
  1. LYRICA [Suspect]
     Indication: NEURALGIA
     Dosage: 25 MG, 2X/DAY
     Route: 048
     Dates: start: 20120531, end: 20120630
  2. BRICANYL TURBUHALER [Concomitant]
     Dosage: UNK
  3. SERETIDE DISKUS [Concomitant]
     Dosage: UNK
  4. OMEPRAZOL [Concomitant]
     Dosage: UNK
  5. ENALAPRIL [Concomitant]
     Dosage: UNK
  6. SIMVASTATIN [Concomitant]
     Dosage: UNK
  7. OVESTERIN [Concomitant]
     Dosage: UNK
  8. FOLACIN [Concomitant]
     Dosage: UNK
  9. ALVEDON [Concomitant]
     Dosage: UNK
  10. BEHEPAN [Concomitant]
     Dosage: UNK
  11. ETALPHA [Concomitant]
     Dosage: UNK
  12. FURIX [Concomitant]
     Dosage: UNK
  13. STILNOCT [Concomitant]
     Dosage: UNK
  14. VISCOTEARS [Concomitant]
     Dosage: UNK
  15. TRADOLAN [Concomitant]
     Dosage: UNK

REACTIONS (3)
  - Oedema peripheral [Recovered/Resolved]
  - Eye pruritus [Recovered/Resolved]
  - Eye swelling [Recovered/Resolved]
